FAERS Safety Report 4472798-8 (Version None)
Quarter: 2004Q4

REPORT INFORMATION
  Report Type: 
  Country: None (occurrence: None)
  Receive Date: 20041012
  Receipt Date: 20041012
  Transmission Date: 20050328
  Serious: Yes (Life-Threatening)
  Sender: FDA-Public Use
  Company Number: None

PATIENT
  Sex: Female
  Weight: 90.7194 kg

DRUGS (1)
  1. VIOXX [Suspect]
     Indication: ARTHRITIS
     Dosage: 50 MG DAILY ORAL
     Route: 048
     Dates: start: 20020405, end: 20041004

REACTIONS (1)
  - BLOOD PRESSURE INADEQUATELY CONTROLLED [None]
